FAERS Safety Report 20689999 (Version 1)
Quarter: 2022Q2

REPORT INFORMATION
  Report Type: Spontaneous
  Country: CN (occurrence: CN)
  Receive Date: 20220408
  Receipt Date: 20220408
  Transmission Date: 20220720
  Serious: Yes (Other)
  Sender: FDA-Public Use
  Company Number: CN-PFIZER INC-202200506505

PATIENT
  Age: 40 Year
  Sex: Female
  Weight: 51.5 kg

DRUGS (1)
  1. CYTARABINE [Suspect]
     Active Substance: CYTARABINE
     Indication: Myeloid leukaemia
     Dosage: 3000 MG, 1X/DAY
     Route: 041
     Dates: start: 20220227, end: 20220302

REACTIONS (4)
  - Face oedema [Recovered/Resolved]
  - Rash pruritic [Recovered/Resolved]
  - Dyspepsia [Recovered/Resolved]
  - Merycism [Recovered/Resolved]

NARRATIVE: CASE EVENT DATE: 20220228
